FAERS Safety Report 8427731-0 (Version None)
Quarter: 2012Q2

REPORT INFORMATION
  Report Type: 
  Country: None (occurrence: None)
  Receive Date: 20120611
  Receipt Date: 20120601
  Transmission Date: 20120825
  Serious: Yes (Disabling)
  Sender: FDA-Public Use
  Company Number: GB-ABBOTT-12P-167-0941640-00

PATIENT
  Age: 30 Year
  Sex: Female
  Weight: 68 kg

DRUGS (5)
  1. ALBUTEROL [Concomitant]
     Indication: PRODUCT USED FOR UNKNOWN INDICATION
     Dosage: BREATH ACTUATED PRESSURISED INHALATION CFC FREE. 100MCG/ ACTUATION 1 INHALER
     Route: 055
  2. NEDOCROMIL SODIUM (ALOCRIL) [Concomitant]
     Indication: PRODUCT USED FOR UNKNOWN INDICATION
     Dosage: AQUEOUS EYE DROPS. 2% 5ML
  3. LACRI-LUBE [Concomitant]
     Indication: PRODUCT USED FOR UNKNOWN INDICATION
     Dosage: EYE OINTMENT. ASDF
  4. BETAMETHASONE W/FUSIDIC ACID [Concomitant]
     Indication: DERMATITIS
     Dosage: 2%+0.1%
  5. HUMIRA [Suspect]
     Indication: PRODUCT USED FOR UNKNOWN INDICATION
     Route: 058

REACTIONS (1)
  - CONJUNCTIVITIS ALLERGIC [None]
